FAERS Safety Report 7106078-9 (Version None)
Quarter: 2010Q4

REPORT INFORMATION
  Report Type: 
  Country: None (occurrence: None)
  Receive Date: 20101116
  Receipt Date: 20101104
  Transmission Date: 20110411
  Serious: Yes (Other)
  Sender: FDA-Public Use
  Company Number: US-MYLANLABS-2010S1017965

PATIENT
  Age: 57 Year
  Sex: Female

DRUGS (1)
  1. EMSAM [Suspect]
     Dates: start: 20060101

REACTIONS (4)
  - ANXIETY [None]
  - APPLICATION SITE IRRITATION [None]
  - MIGRAINE [None]
  - PARALYSIS [None]
